FAERS Safety Report 18576300 (Version 1)
Quarter: 2020Q4

REPORT INFORMATION
  Report Type: Spontaneous
  Country: US (occurrence: US)
  Receive Date: 20201203
  Receipt Date: 20201203
  Transmission Date: 20210114
  Serious: Yes (Hospitalization)
  Sender: FDA-Public Use
  Company Number: US-BAYER-2020-261214

PATIENT
  Age: 77 Year
  Sex: Female

DRUGS (2)
  1. ACETYLSALICYLIC ACID [Suspect]
     Active Substance: ASPIRIN
  2. TISSUE PLASMINOGEN ACTIVATOR, RECOMBINATIVE [Interacting]
     Active Substance: ALTEPLASE

REACTIONS (2)
  - Labelled drug-drug interaction issue [None]
  - Cerebral haemorrhage [None]
